FAERS Safety Report 15945062 (Version 1)
Quarter: 2019Q1

REPORT INFORMATION
  Report Type: Report from Study
  Country: US (occurrence: US)
  Receive Date: 20190211
  Receipt Date: 20190211
  Transmission Date: 20190417
  Serious: Yes (Hospitalization)
  Sender: FDA-Public Use
  Company Number: US-SA-2019SA030309

PATIENT
  Age: 66 Year
  Sex: Female

DRUGS (1)
  1. INSULIN GLARGINE [Suspect]
     Active Substance: INSULIN GLARGINE
     Indication: DIABETES MELLITUS INADEQUATE CONTROL
     Dosage: 60 U, QD
     Route: 058

REACTIONS (3)
  - Localised infection [Recovered/Resolved]
  - Blood count abnormal [Unknown]
  - Blindness unilateral [Not Recovered/Not Resolved]
